FAERS Safety Report 24603541 (Version 1)
Quarter: 2024Q4

REPORT INFORMATION
  Report Type: Spontaneous
  Country: US (occurrence: None)
  Receive Date: 20241109
  Receipt Date: 20241109
  Transmission Date: 20250115
  Serious: Yes (Disabling)
  Sender: Public
  Company Number: None

PATIENT
  Age: 34 Year
  Sex: Female
  Weight: 59.85 kg

DRUGS (1)
  1. TEPEZZA [Suspect]
     Active Substance: TEPROTUMUMAB-TRBW
     Indication: Endocrine ophthalmopathy

REACTIONS (7)
  - Myalgia [None]
  - Diarrhoea [None]
  - Nausea [None]
  - Palpitations [None]
  - Tinnitus [None]
  - Heart rate increased [None]
  - Diabetes mellitus [None]

NARRATIVE: CASE EVENT DATE: 20241001
